FAERS Safety Report 9155470 (Version 1)
Quarter: 2013Q1

REPORT INFORMATION
  Report Type: Spontaneous
  Country: US (occurrence: US)
  Receive Date: 20130311
  Receipt Date: 20130311
  Transmission Date: 20140127
  Serious: Yes (Hospitalization, Other)
  Sender: FDA-Public Use
  Company Number: US-ELI_LILLY_AND_COMPANY-US201303000253

PATIENT
  Sex: Female

DRUGS (5)
  1. HUMALOG LISPRO [Suspect]
     Indication: DIABETES MELLITUS
     Dosage: UNK UNK, PRN
     Route: 058
     Dates: start: 1999
  2. GLUCAGON [Suspect]
     Indication: BLOOD GLUCOSE DECREASED
     Dosage: UNK
  3. VIMPAT [Concomitant]
  4. ZONEGRAN [Concomitant]
  5. AMITRIPTYLENE [Concomitant]

REACTIONS (7)
  - Grand mal convulsion [Unknown]
  - Loss of consciousness [Unknown]
  - Epilepsy [Unknown]
  - Brain injury [Unknown]
  - Convulsion [Unknown]
  - Head injury [Unknown]
  - Blood glucose decreased [Unknown]
